FAERS Safety Report 9824206 (Version 1)
Quarter: 2014Q1

REPORT INFORMATION
  Report Type: Report from Study
  Country: US (occurrence: US)
  Receive Date: 20140116
  Receipt Date: 20140116
  Transmission Date: 20141002
  Serious: Yes (Death)
  Sender: FDA-Public Use
  Company Number: US-ROCHE-1331984

PATIENT
  Sex: Female

DRUGS (8)
  1. AVASTIN [Suspect]
     Indication: LUNG NEOPLASM MALIGNANT
     Dosage: 15 MG/KG
     Route: 042
     Dates: start: 20101012
  2. CYANOCOBALAMIN [Concomitant]
     Dosage: 1000MCG INJ DAILY X1 DAY
     Route: 042
  3. CARBOPLATIN [Concomitant]
  4. TAXOL [Concomitant]
  5. ALOXI [Concomitant]
     Dosage: IVP OVER 2 MINUTES
     Route: 042
  6. PEMETREXED [Concomitant]
     Dosage: IVP OVER 20 MINUTES
     Route: 042
     Dates: start: 20101012
  7. PEMETREXED [Concomitant]
     Dosage: IVP OVER 20 MINUTES
     Route: 042
     Dates: start: 20101102
  8. ALIMTA [Concomitant]
     Route: 065

REACTIONS (1)
  - Death [Fatal]
